FAERS Safety Report 10011521 (Version 1)
Quarter: 2014Q1

REPORT INFORMATION
  Report Type: Spontaneous
  Country: US (occurrence: None)
  Receive Date: 20140313
  Receipt Date: 20140313
  Transmission Date: 20141002
  Serious: Yes (Death)
  Sender: FDA-Public Use
  Company Number: None

PATIENT
  Age: 71 Year
  Sex: Male
  Weight: 75.5 kg

DRUGS (5)
  1. DABIGATRAN [Suspect]
     Indication: ATRIAL FIBRILLATION
     Route: 048
     Dates: start: 20140217, end: 20140311
  2. ASPIRIN [Concomitant]
  3. DRONEDARONE [Concomitant]
  4. LORTAB [Concomitant]
  5. PROSCAR [Concomitant]

REACTIONS (4)
  - Abdominal pain upper [None]
  - Gastrointestinal haemorrhage [None]
  - Intestinal ischaemia [None]
  - Dialysis [None]
